FAERS Safety Report 8160549 (Version 2)
Quarter: 2012Q4

REPORT INFORMATION
  Report Type: 
  Country: US (occurrence: US)
  Receive Date: 20110928
  Receipt Date: 20120910
  Transmission Date: 20130627
  Serious: Yes (Hospitalization)
  Sender: FDA-Public Use
  Company Number: US-US-EMD SERONO, INC.-7084018

PATIENT
  Age: 49 None
  Sex: Female
  Weight: 138 kg

DRUGS (9)
  1. REBIF [Suspect]
     Indication: MULTIPLE SCLEROSIS
     Dates: end: 201008
  2. REBIF [Suspect]
     Route: 058
     Dates: start: 20110817, end: 201203
  3. ALBUTEROL [Concomitant]
     Indication: ASTHMA
  4. SINGULAIR [Concomitant]
     Indication: ASTHMA
  5. SPIRIVA [Concomitant]
     Indication: ASTHMA
  6. XOPENEX [Concomitant]
     Indication: ASTHMA
  7. SYMBICORT [Concomitant]
     Indication: ASTHMA
  8. POTASSIUM [Concomitant]
     Indication: BLOOD POTASSIUM DECREASED
  9. BLOOD PRESSURE MEDICATIONS [Concomitant]
     Indication: HYPERTENSION

REACTIONS (10)
  - Chronic obstructive pulmonary disease [Unknown]
  - Malignant hypertension [Recovering/Resolving]
  - Asthma [Unknown]
  - Abscess [Unknown]
  - Cellulitis [Unknown]
  - Diabetes mellitus [Unknown]
  - Multiple sclerosis relapse [Recovering/Resolving]
  - Escherichia urinary tract infection [Recovering/Resolving]
  - Blood glucose increased [Unknown]
  - Central nervous system lesion [Unknown]
